FAERS Safety Report 5228776-4 (Version None)
Quarter: 2007Q1

REPORT INFORMATION
  Report Type: 
  Country: None (occurrence: None)
  Receive Date: 20070131
  Receipt Date: 20061206
  Transmission Date: 20070707
  Serious: Yes (Disabling)
  Sender: FDA-Public Use
  Company Number: 2005-125315-NL

PATIENT
  Sex: Female

DRUGS (1)
  1. ETONOGESTREL [Suspect]
     Dosage: DF

REACTIONS (4)
  - ANXIETY [None]
  - COMPLEX REGIONAL PAIN SYNDROME [None]
  - COMPLICATION OF DEVICE REMOVAL [None]
  - MEDIAN NERVE INJURY [None]
